FAERS Safety Report 15022702 (Version 1)
Quarter: 2018Q2

REPORT INFORMATION
  Report Type: Spontaneous
  Country: CH (occurrence: CH)
  Receive Date: 20180618
  Receipt Date: 20180618
  Transmission Date: 20180711
  Serious: Yes (Other)
  Sender: FDA-Public Use
  Company Number: PHHY2018CH018773

PATIENT
  Age: 0 Day
  Sex: Male
  Weight: 3.69 kg

DRUGS (5)
  1. METFIN [Suspect]
     Active Substance: METFORMIN HYDROCHLORIDE
     Indication: FOETAL EXPOSURE DURING PREGNANCY
     Dosage: MOTHER DOSE (500 MG BID)
     Route: 064
     Dates: end: 20170906
  2. ALDACTONE [Suspect]
     Active Substance: SPIRONOLACTONE
     Indication: FOETAL EXPOSURE DURING PREGNANCY
     Dosage: MOTHER DOSE: 50 MG QW
     Route: 064
     Dates: end: 20170906
  3. TRAUMANASE FORTE [Suspect]
     Active Substance: BROMELAINS
     Indication: FOETAL EXPOSURE DURING PREGNANCY
     Dosage: UNK
     Route: 064
     Dates: end: 20170906
  4. ORLISTAT. [Suspect]
     Active Substance: ORLISTAT
     Indication: FOETAL EXPOSURE DURING PREGNANCY
     Dosage: UNK
     Route: 064
     Dates: end: 20170906
  5. GEVILON [Suspect]
     Active Substance: GEMFIBROZIL
     Indication: FOETAL EXPOSURE DURING PREGNANCY
     Dosage: UNK
     Route: 064
     Dates: end: 20170906

REACTIONS (3)
  - Delivery [None]
  - Microcephaly [Not Recovered/Not Resolved]
  - Foetal exposure during pregnancy [None]

NARRATIVE: CASE EVENT DATE: 20180411
